FAERS Safety Report 6570788-2 (Version None)
Quarter: 2010Q1

REPORT INFORMATION
  Report Type: 
  Country: None (occurrence: None)
  Receive Date: 20100204
  Receipt Date: 20100126
  Transmission Date: 20100710
  Serious: Yes (Hospitalization)
  Sender: FDA-Public Use
  Company Number: JP-JNJFOC-20090706464

PATIENT
  Sex: Female
  Weight: 51 kg

DRUGS (7)
  1. FLORID ORAL GEL 2% [Suspect]
     Indication: ORAL CANDIDIASIS
     Route: 049
  2. FLORID ORAL GEL 2% [Suspect]
     Route: 049
  3. WARFARIN POTASSIUM [Interacting]
     Indication: EMBOLIC STROKE
     Route: 048
  4. TEPRENONE [Concomitant]
     Route: 048
  5. LOPRESSOR [Concomitant]
     Route: 048
  6. SELIS [Concomitant]
     Route: 048
  7. NATRIX [Concomitant]
     Route: 048

REACTIONS (3)
  - DRUG INTERACTION [None]
  - INTERNATIONAL NORMALISED RATIO INCREASED [None]
  - SUBCUTANEOUS HAEMATOMA [None]
